FAERS Safety Report 6858876-4 (Version None)
Quarter: 2010Q3

REPORT INFORMATION
  Report Type: 
  Country: None (occurrence: None)
  Receive Date: 20100719
  Receipt Date: 20080404
  Transmission Date: 20110219
  Serious: No
  Sender: FDA-Public Use
  Company Number: US-PFIZER INC-2008014945

PATIENT
  Sex: Female
  Weight: 52 kg

DRUGS (4)
  1. CHANTIX [Suspect]
     Indication: SMOKING CESSATION THERAPY
     Route: 048
     Dates: start: 20080115, end: 20080212
  2. LORAZEPAM [Concomitant]
  3. SOMA [Concomitant]
  4. ESTROGENS [Concomitant]

REACTIONS (4)
  - MIGRAINE [None]
  - MUSCLE SPASMS [None]
  - RASH [None]
  - SCAR [None]
